FAERS Safety Report 6549849-X (Version None)
Quarter: 2010Q1

REPORT INFORMATION
  Report Type: 
  Country: None (occurrence: None)
  Receive Date: 20100119
  Receipt Date: 20100105
  Transmission Date: 20100710
  Serious: No
  Sender: FDA-Public Use
  Company Number: 000628435-AKO-4996

PATIENT

DRUGS (1)
  1. GENTAK [Suspect]
     Indication: PROPHYLAXIS
     Dosage: OT, TOPICAL
     Route: 061
     Dates: start: 20091201, end: 20091201

REACTIONS (2)
  - APPLICATION SITE SWELLING [None]
  - APPLICATION SITE VESICLES [None]
